FAERS Safety Report 4539697-4 (Version None)
Quarter: 2004Q4

REPORT INFORMATION
  Report Type: 
  Country: None (occurrence: None)
  Receive Date: 20041228
  Receipt Date: 20030605
  Transmission Date: 20050328
  Serious: Yes (Hospitalization, Other)
  Sender: FDA-Public Use
  Company Number: US-MERCK-0306USA00928

PATIENT
  Age: 52 Year
  Sex: Male

DRUGS (8)
  1. VIOXX [Suspect]
     Indication: BACK PAIN
     Route: 048
     Dates: start: 20000118
  2. VIOXX [Suspect]
     Indication: SURGERY
     Route: 048
     Dates: start: 20000118
  3. ZYDONE [Concomitant]
     Route: 065
  4. PROZAC [Concomitant]
     Route: 048
  5. PRILOSEC [Concomitant]
     Indication: STOMACH DISCOMFORT
     Route: 048
  6. ELAVIL [Concomitant]
     Route: 065
  7. ZANAFLEX [Concomitant]
     Indication: LUMBAR SPINE FLATTENING
     Route: 048
  8. ALEVE [Concomitant]
     Route: 065

REACTIONS (20)
  - ADVERSE EVENT [None]
  - ANGINA PECTORIS [None]
  - CHEST PAIN [None]
  - CONVULSION [None]
  - CORONARY ARTERY DISEASE [None]
  - CORONARY ARTERY STENOSIS [None]
  - CORONARY ARTERY THROMBOSIS [None]
  - DEPRESSION [None]
  - HYPERTENSION [None]
  - JOINT DISLOCATION [None]
  - LUMBAR RADICULOPATHY [None]
  - MYOCARDIAL INFARCTION [None]
  - NARCOTIC INTOXICATION [None]
  - OVERDOSE [None]
  - POISONING [None]
  - PULMONARY OEDEMA [None]
  - RENAL FAILURE CHRONIC [None]
  - SPONDYLOSIS [None]
  - STENT OCCLUSION [None]
  - URINARY TRACT DISORDER [None]
